FAERS Safety Report 10043077 (Version 2)
Quarter: 2014Q2

REPORT INFORMATION
  Report Type: Spontaneous
  Country: US (occurrence: US)
  Receive Date: 20140328
  Receipt Date: 20140416
  Transmission Date: 20141212
  Serious: No
  Sender: FDA-Public Use
  Company Number: US-BIOGENIDEC-2014BI015054

PATIENT
  Age: 39 Year
  Sex: 0

DRUGS (2)
  1. AVONEX [Suspect]
     Indication: MULTIPLE SCLEROSIS
     Route: 030
     Dates: start: 20140115, end: 20140219
  2. AVONEX [Suspect]
     Indication: MULTIPLE SCLEROSIS
     Route: 030
     Dates: start: 20140219

REACTIONS (7)
  - Influenza like illness [Recovered/Resolved]
  - Sinusitis [Recovered/Resolved]
  - Apathy [Recovered/Resolved]
  - Social avoidant behaviour [Recovered/Resolved]
  - Pain [Recovered/Resolved]
  - Depressed mood [Not Recovered/Not Resolved]
  - Mood swings [Recovered/Resolved]
